FAERS Safety Report 6871118-9 (Version None)
Quarter: 2010Q3

REPORT INFORMATION
  Report Type: 
  Country: None (occurrence: None)
  Receive Date: 20100723
  Receipt Date: 20100705
  Transmission Date: 20110219
  Serious: Yes (Hospitalization, Other)
  Sender: FDA-Public Use
  Company Number: JP-JNJFOC-20100606595

PATIENT
  Sex: Male

DRUGS (22)
  1. CRAVIT [Suspect]
     Indication: ANTIBIOTIC PROPHYLAXIS
     Route: 048
  2. CRAVIT [Suspect]
     Route: 048
  3. CRAVIT [Suspect]
     Route: 048
  4. CRAVIT [Suspect]
     Route: 048
  5. CRAVIT [Suspect]
     Route: 048
  6. CRAVIT [Suspect]
     Route: 048
  7. CRAVIT [Suspect]
     Indication: INFECTION PROPHYLAXIS
     Route: 048
  8. CRAVIT [Suspect]
     Route: 048
  9. CRAVIT [Suspect]
     Route: 048
  10. CRAVIT [Suspect]
     Route: 048
  11. CRAVIT [Suspect]
     Route: 048
  12. CRAVIT [Suspect]
     Route: 048
  13. IMMUCYST [Suspect]
     Indication: BLADDER CANCER
     Route: 043
  14. IMMUCYST [Suspect]
     Route: 043
  15. IMMUCYST [Suspect]
     Route: 043
  16. IMMUCYST [Suspect]
     Route: 043
  17. IMMUCYST [Suspect]
     Route: 043
  18. IMMUCYST [Suspect]
     Route: 043
  19. IMMUCYST [Suspect]
     Route: 043
  20. ZYLORIC [Concomitant]
     Indication: CONVULSION
     Route: 048
  21. BUFERIN [Concomitant]
  22. SALOBEL [Concomitant]
     Indication: PRODUCT USED FOR UNKNOWN INDICATION
     Route: 048

REACTIONS (2)
  - CONVULSION [None]
  - OXYGEN SATURATION DECREASED [None]
